FAERS Safety Report 10868404 (Version 1)
Quarter: 2015Q1

REPORT INFORMATION
  Report Type: Report from Study
  Country: US (occurrence: US)
  Receive Date: 20150225
  Receipt Date: 20150225
  Transmission Date: 20150721
  Serious: Yes (Other)
  Sender: FDA-Public Use
  Company Number: PHEH2014US021913

PATIENT
  Age: 45 Year
  Sex: Female
  Weight: 99.77 kg

DRUGS (2)
  1. GILENYA [Suspect]
     Active Substance: FINGOLIMOD HYDROCHLORIDE
     Indication: MULTIPLE SCLEROSIS
     Dosage: 0.5 MG, QD
     Route: 048
     Dates: start: 20101209
  2. GILENYA [Suspect]
     Active Substance: FINGOLIMOD HYDROCHLORIDE
     Dosage: 0.5 MG, QD
     Route: 048
     Dates: start: 20141106, end: 20141201

REACTIONS (3)
  - Accelerated hypertension [Recovered/Resolved]
  - Hypertension [Unknown]
  - Fluid overload [Unknown]

NARRATIVE: CASE EVENT DATE: 20141201
